FAERS Safety Report 5316804-7 (Version None)
Quarter: 2007Q2

REPORT INFORMATION
  Report Type: 
  Country: None (occurrence: None)
  Receive Date: 20070501
  Receipt Date: 20070501
  Transmission Date: 20071010
  Serious: No
  Sender: FDA-Public Use
  Company Number: None

PATIENT
  Sex: Male
  Weight: 78.4723 kg

DRUGS (2)
  1. WELLBUTRIN XL [Suspect]
     Indication: ATTENTION DEFICIT/HYPERACTIVITY DISORDER
     Dosage: 150MG QDAY PO
     Route: 048
     Dates: start: 20070123, end: 20070216
  2. WELLBUTRIN XL [Suspect]
     Indication: TOBACCO ABUSE
     Dosage: 150MG QDAY PO
     Route: 048
     Dates: start: 20070123, end: 20070216

REACTIONS (1)
  - URTICARIA [None]
